FAERS Safety Report 8250501-3 (Version None)
Quarter: 2012Q2

REPORT INFORMATION
  Report Type: 
  Country: None (occurrence: None)
  Receive Date: 20120402
  Receipt Date: 20120402
  Transmission Date: 20120825
  Serious: Yes (Other)
  Sender: FDA-Public Use
  Company Number: None

PATIENT
  Age: 49 Year
  Sex: Male
  Weight: 103.41 kg

DRUGS (1)
  1. OMNITROPIN [Suspect]
     Dosage: .2 MG PER DAY
     Route: 058
     Dates: start: 20120214, end: 20120325

REACTIONS (5)
  - TESTICULAR PAIN [None]
  - TESTICULAR HYPERTROPHY [None]
  - EJACULATION DISORDER [None]
  - SEMEN VOLUME INCREASED [None]
  - MALE ORGASMIC DISORDER [None]
